FAERS Safety Report 18125874 (Version 1)
Quarter: 2020Q3

REPORT INFORMATION
  Report Type: Spontaneous
  Country: CN (occurrence: CN)
  Receive Date: 20200807
  Receipt Date: 20200807
  Transmission Date: 20201104
  Serious: Yes (Other)
  Sender: FDA-Public Use
  Company Number: CN-ASTRAZENECA-2020SE96730

PATIENT
  Age: 27394 Day
  Sex: Male
  Weight: 49 kg

DRUGS (1)
  1. OSIMERTINIB MESYLATE. [Suspect]
     Active Substance: OSIMERTINIB MESYLATE
     Indication: CHEMOTHERAPY
     Route: 048
     Dates: start: 20200407, end: 20200721

REACTIONS (1)
  - Renal failure [Unknown]

NARRATIVE: CASE EVENT DATE: 20200722
